FAERS Safety Report 5764923-3 (Version None)
Quarter: 2008Q2

REPORT INFORMATION
  Report Type: 
  Country: None (occurrence: None)
  Receive Date: 20080611
  Receipt Date: 20080603
  Transmission Date: 20081010
  Serious: Yes (Death)
  Sender: FDA-Public Use
  Company Number: A0730864A

PATIENT
  Age: 95 Year
  Sex: Female

DRUGS (1)
  1. VERAMYST [Suspect]
     Indication: RHINORRHOEA
     Route: 045
     Dates: start: 20080301, end: 20080522

REACTIONS (1)
  - DEATH [None]
